FAERS Safety Report 13095662 (Version 1)
Quarter: 2017Q1

REPORT INFORMATION
  Report Type: Spontaneous
  Country: US (occurrence: US)
  Receive Date: 20170109
  Receipt Date: 20170109
  Transmission Date: 20170428
  Serious: No
  Sender: FDA-Public Use
  Company Number: US-AUROBINDO-AUR-APU-2015-08342

PATIENT
  Age: 80 Year
  Sex: Female

DRUGS (1)
  1. CEPHALEXIN CAPSULES USP 250 MG [Suspect]
     Active Substance: CEPHALEXIN
     Indication: URINARY TRACT INFECTION
     Dosage: 3 DF, DAILY
     Route: 065
     Dates: start: 20150915, end: 20150915

REACTIONS (2)
  - Dyskinesia [Recovered/Resolved]
  - Muscular weakness [Recovered/Resolved]

NARRATIVE: CASE EVENT DATE: 20150915
